FAERS Safety Report 5041925-6 (Version None)
Quarter: 2006Q2

REPORT INFORMATION
  Report Type: 
  Country: None (occurrence: None)
  Receive Date: 20060630
  Receipt Date: 20060621
  Transmission Date: 20061013
  Serious: Yes (Other)
  Sender: FDA-Public Use
  Company Number: 2005120168

PATIENT
  Age: 89 Year
  Sex: Male

DRUGS (6)
  1. MACUGEN [Suspect]
     Indication: EYE HAEMORRHAGE
     Dosage: INTRAVITREOUS
     Dates: start: 20050712
  2. MACUGEN [Suspect]
     Indication: MACULAR DEGENERATION
     Dosage: INTRAVITREOUS
     Dates: start: 20050712
  3. NEXIUM [Concomitant]
  4. FLOMAX [Concomitant]
  5. ARTIFICIAL TEARS [Concomitant]
  6. MULTIVITAMIN [Concomitant]

REACTIONS (2)
  - DETACHMENT OF RETINAL PIGMENT EPITHELIUM [None]
  - VISUAL ACUITY REDUCED [None]
